FAERS Safety Report 5448209-2 (Version None)
Quarter: 2007Q3

REPORT INFORMATION
  Report Type: 
  Country: None (occurrence: None)
  Receive Date: 20070906
  Receipt Date: 20070831
  Transmission Date: 20080115
  Serious: Yes (Death)
  Sender: FDA-Public Use
  Company Number: 2007SP017578

PATIENT
  Age: 63 Year
  Sex: Male
  Weight: 61 kg

DRUGS (18)
  1. TEMODAL [Suspect]
     Indication: ASTROCYTOMA
     Dosage: 150 MG/M2; QD; PO; 200 MG/M2; QD; PO
     Route: 048
     Dates: start: 20061014, end: 20061018
  2. TEMODAL [Suspect]
     Indication: NEOPLASM RECURRENCE
     Dosage: 150 MG/M2; QD; PO; 200 MG/M2; QD; PO
     Route: 048
     Dates: start: 20061014, end: 20061018
  3. TEMODAL [Suspect]
     Indication: ASTROCYTOMA
     Dosage: 150 MG/M2; QD; PO; 200 MG/M2; QD; PO
     Route: 048
     Dates: start: 20061111, end: 20061115
  4. TEMODAL [Suspect]
     Indication: NEOPLASM RECURRENCE
     Dosage: 150 MG/M2; QD; PO; 200 MG/M2; QD; PO
     Route: 048
     Dates: start: 20061111, end: 20061115
  5. TEMODAL [Suspect]
     Indication: ASTROCYTOMA
     Dosage: 150 MG/M2; QD; PO; 200 MG/M2; QD; PO
     Route: 048
     Dates: start: 20061209, end: 20061213
  6. TEMODAL [Suspect]
     Indication: NEOPLASM RECURRENCE
     Dosage: 150 MG/M2; QD; PO; 200 MG/M2; QD; PO
     Route: 048
     Dates: start: 20061209, end: 20061213
  7. TEMODAL [Suspect]
     Indication: ASTROCYTOMA
     Dosage: 150 MG/M2; QD; PO; 200 MG/M2; QD; PO
     Route: 048
     Dates: start: 20070106, end: 20070110
  8. TEMODAL [Suspect]
     Indication: NEOPLASM RECURRENCE
     Dosage: 150 MG/M2; QD; PO; 200 MG/M2; QD; PO
     Route: 048
     Dates: start: 20070106, end: 20070110
  9. TEMODAL [Suspect]
     Indication: ASTROCYTOMA
     Dosage: 150 MG/M2; QD; PO; 200 MG/M2; QD; PO
     Route: 048
     Dates: start: 20070203, end: 20070207
  10. TEMODAL [Suspect]
     Indication: NEOPLASM RECURRENCE
     Dosage: 150 MG/M2; QD; PO; 200 MG/M2; QD; PO
     Route: 048
     Dates: start: 20070203, end: 20070207
  11. NAVOBAN [Concomitant]
  12. RINDERON [Concomitant]
  13. FAMOTIDINE [Concomitant]
  14. PURSENNID [Concomitant]
  15. EXCEGRAN [Concomitant]
  16. MAGNESIUM OXIDE [Concomitant]
  17. PRIMPERAN INJ [Concomitant]
  18. ZOLPIDEM [Concomitant]

REACTIONS (6)
  - ACCIDENT [None]
  - ACTIVITIES OF DAILY LIVING IMPAIRED [None]
  - DEPRESSED LEVEL OF CONSCIOUSNESS [None]
  - FALL [None]
  - SPINAL COMPRESSION FRACTURE [None]
  - THORACIC VERTEBRAL FRACTURE [None]
